FAERS Safety Report 7560354-4 (Version None)
Quarter: 2011Q2

REPORT INFORMATION
  Report Type: 
  Country: None (occurrence: None)
  Receive Date: 20110621
  Receipt Date: 20110606
  Transmission Date: 20111010
  Serious: Yes (Other)
  Sender: FDA-Public Use
  Company Number: CA-WATSON-2011-07900

PATIENT

DRUGS (7)
  1. VALACYCLOVIR HYDROCHLORIDE [Concomitant]
     Indication: HERPES ZOSTER
     Dosage: 1000 MG, TID
     Dates: start: 20110527, end: 20110603
  2. VENLAFAXINE HCL [Concomitant]
     Indication: DEPRESSION
     Dosage: 37.5 MG, QAM
     Dates: start: 20110527
  3. VALSARTAN [Concomitant]
     Indication: HYPERTENSION
     Dosage: 80 MG, QAM
     Dates: start: 20080101
  4. PLAVIX [Concomitant]
     Indication: DRESSLER'S SYNDROME
     Dosage: 75 MG, QAM
     Dates: start: 20080101
  5. TECTA [Concomitant]
     Indication: GASTROOESOPHAGEAL REFLUX DISEASE
     Dosage: 40 MG, QAM
     Dates: start: 20100101
  6. RISPERIDONE [Suspect]
     Indication: SLEEP DISORDER
     Dosage: 0.25 MG, BID
     Route: 048
     Dates: start: 20110503, end: 20110527
  7. TRAZODONE HCL [Concomitant]
     Indication: INSOMNIA
     Dosage: 50 MG, QHS
     Dates: start: 20110527

REACTIONS (1)
  - HALLUCINATION, AUDITORY [None]
